FAERS Safety Report 5866579-8 (Version None)
Quarter: 2008Q3

REPORT INFORMATION
  Report Type: 
  Country: None (occurrence: None)
  Receive Date: 20080829
  Receipt Date: 20080829
  Transmission Date: 20090109
  Serious: No
  Sender: FDA-Public Use
  Company Number: None

PATIENT
  Age: 11 Year
  Sex: Male

DRUGS (2)
  1. DIVALPROEX EXTENDED-RELEASE [Suspect]
     Dosage: 500MG PO BID
     Route: 048
  2. GEODON [Concomitant]

REACTIONS (3)
  - MUSCLE SPASMS [None]
  - PHARMACEUTICAL PRODUCT COMPLAINT [None]
  - TIC [None]
